FAERS Safety Report 20538332 (Version 1)
Quarter: 2022Q1

REPORT INFORMATION
  Report Type: Spontaneous
  Country: US (occurrence: None)
  Receive Date: 20220302
  Receipt Date: 20220302
  Transmission Date: 20220423
  Serious: Yes (unspecified)
  Sender: FDA-Public Use
  Company Number: None

PATIENT
  Age: 73 Year
  Sex: Male
  Weight: 111 kg

DRUGS (1)
  1. BENAZEPRIL HYDROCHLORIDE [Suspect]
     Active Substance: BENAZEPRIL HYDROCHLORIDE
     Indication: Hypertension
     Dosage: 20 MG EVERY DAY PO?
     Route: 048
     Dates: start: 20200108, end: 20210520

REACTIONS (4)
  - Drug-induced liver injury [None]
  - Vanishing bile duct syndrome [None]
  - COVID-19 [None]
  - Cholestatic liver injury [None]

NARRATIVE: CASE EVENT DATE: 20210520
